FAERS Safety Report 8297944-X (Version None)
Quarter: 2012Q2

REPORT INFORMATION
  Report Type: 
  Country: None (occurrence: None)
  Receive Date: 20120419
  Receipt Date: 20120411
  Transmission Date: 20120825
  Serious: Yes (Death)
  Sender: FDA-Public Use
  Company Number: JP-ASTRAZENECA-2012SE24816

PATIENT
  Age: 77 Year
  Sex: Male
  Weight: 62 kg

DRUGS (7)
  1. CANDESARTAN CILEXETIL [Concomitant]
     Indication: HYPERTENSION
     Route: 048
     Dates: end: 20090921
  2. NICHISTATE [Concomitant]
     Indication: CEREBRAL THROMBOSIS
     Route: 048
     Dates: end: 20090907
  3. BERIZYM [Concomitant]
     Indication: DYSPEPSIA
     Route: 048
     Dates: start: 20090810, end: 20090907
  4. ECARD COMBINATION TABLETS HD [Suspect]
     Indication: HYPERTENSION
     Dosage: 1 DF EVERY DAY
     Route: 048
     Dates: start: 20090824, end: 20090921
  5. CEFAZOLIN SODIUM [Concomitant]
     Indication: ENTEROCOLITIS
     Route: 048
     Dates: start: 20090810, end: 20090907
  6. TAMSULOSIN HCL [Concomitant]
     Indication: BENIGN PROSTATIC HYPERPLASIA
     Route: 048
     Dates: end: 20090907
  7. PROTECADIN [Concomitant]
     Indication: GASTRITIS
     Route: 048
     Dates: start: 20090615, end: 20090907

REACTIONS (1)
  - DEATH [None]
